FAERS Safety Report 8112976-X (Version None)
Quarter: 2012Q1

REPORT INFORMATION
  Report Type: 
  Country: None (occurrence: None)
  Receive Date: 20120203
  Receipt Date: 20120123
  Transmission Date: 20120608
  Serious: Yes (Hospitalization, Other)
  Sender: FDA-Public Use
  Company Number: US-ELI_LILLY_AND_COMPANY-US201112007262

PATIENT
  Sex: Female
  Weight: 49 kg

DRUGS (14)
  1. PROAIR HFA [Concomitant]
     Dosage: UNK, OTHER
     Route: 065
  2. MUCINEX [Concomitant]
     Dosage: UNK, QD|
     Route: 065
  3. ADVAIR DISKUS 100/50 [Concomitant]
     Dosage: UNK, QD
     Route: 065
  4. VITAMIN D [Concomitant]
     Dosage: 1000 IU, QD
     Route: 065
  5. PLAVIX [Concomitant]
     Dosage: UNK, QD
     Route: 065
  6. SPIRIVA [Concomitant]
     Dosage: UNK, UNKNOWN
     Route: 065
  7. LIPITOR [Concomitant]
     Dosage: UNK, QD
     Route: 065
  8. METOPROLOL [Concomitant]
     Dosage: UNK, QD
     Route: 065
  9. MOXIFLOXACIN [Concomitant]
     Dosage: UNK, QD
     Route: 065
  10. NORVASC [Concomitant]
     Dosage: UNK, QD
     Route: 065
  11. CALCIUM [Concomitant]
     Dosage: UNK, QD
     Route: 065
  12. COUMADIN [Concomitant]
     Dosage: UNK, QD
     Route: 065
  13. PREDNISONE TAB [Concomitant]
     Dosage: UNK, QD
     Route: 065
  14. FORTEO [Suspect]
     Indication: OSTEOPOROSIS
     Dosage: 20 UG, QD
     Route: 065
     Dates: start: 20111021

REACTIONS (5)
  - HAEMOGLOBIN DECREASED [None]
  - PNEUMONIA [None]
  - LUNG INFECTION [None]
  - WHITE BLOOD CELL COUNT INCREASED [None]
  - PLATELET COUNT INCREASED [None]
